FAERS Safety Report 4475798-7 (Version None)
Quarter: 2004Q4

REPORT INFORMATION
  Report Type: 
  Country: None (occurrence: None)
  Receive Date: 20041015
  Receipt Date: 20041008
  Transmission Date: 20050328
  Serious: Yes (Hospitalization)
  Sender: FDA-Public Use
  Company Number: FR-GLAXOSMITHKLINE-B0347638A

PATIENT
  Age: 77 Year
  Sex: Female
  Weight: 108 kg

DRUGS (12)
  1. AUGMENTIN '125' [Suspect]
     Indication: INFECTION
     Route: 048
     Dates: start: 20040501, end: 20040501
  2. PYOSTACINE [Suspect]
     Indication: INFECTION
     Route: 048
     Dates: start: 20040501, end: 20040501
  3. DIFFU K [Concomitant]
  4. LOVENOX [Concomitant]
  5. MIXTARD HUMAN 70/30 [Concomitant]
  6. LASILIX [Concomitant]
     Route: 048
  7. GLUCOR [Concomitant]
  8. CORVASAL [Concomitant]
  9. MOPRAL [Concomitant]
  10. KARDEGIC [Concomitant]
  11. VASTEN [Concomitant]
  12. LEVOTHYROX [Concomitant]

REACTIONS (10)
  - ATRIAL FIBRILLATION [None]
  - BLOOD CREATININE INCREASED [None]
  - CHEST PAIN [None]
  - CONDITION AGGRAVATED [None]
  - DERMATITIS EXFOLIATIVE [None]
  - LEUKOCYTOSIS [None]
  - RASH PUSTULAR [None]
  - RENAL FAILURE [None]
  - SKIN DESQUAMATION [None]
  - TACHYARRHYTHMIA [None]
